FAERS Safety Report 6656569-X (Version None)
Quarter: 2010Q1

REPORT INFORMATION
  Report Type: 
  Country: None (occurrence: None)
  Receive Date: 20100329
  Receipt Date: 20100319
  Transmission Date: 20100710
  Serious: Yes (Hospitalization)
  Sender: FDA-Public Use
  Company Number: US-ASTRAZENECA-2010SE12252

PATIENT
  Age: 58 Year
  Sex: Female

DRUGS (5)
  1. SEROQUEL XR [Suspect]
     Indication: BIPOLAR DISORDER
     Dosage: 200 MG IN THE MORNING AND 300 MG IN THE EVENING
     Route: 048
  2. SEROQUEL XR [Suspect]
     Dosage: EXTRA 300 MG IN THE EVENING
     Route: 048
  3. WELLBUTRIN XL [Concomitant]
  4. ATIVAN [Concomitant]
  5. TRAZODONE HCL [Concomitant]

REACTIONS (4)
  - AGITATION [None]
  - CONFUSIONAL STATE [None]
  - INCORRECT DOSE ADMINISTERED [None]
  - TRANCE [None]
